FAERS Safety Report 6604174-3 (Version None)
Quarter: 2010Q1

REPORT INFORMATION
  Report Type: 
  Country: None (occurrence: None)
  Receive Date: 20100226
  Receipt Date: 20090619
  Transmission Date: 20100710
  Serious: Yes (Other)
  Sender: FDA-Public Use
  Company Number: A0792506A

PATIENT
  Age: 14 Year
  Sex: Male

DRUGS (3)
  1. LAMICTAL CD [Suspect]
     Route: 048
  2. DEPAKOTE [Concomitant]
  3. ZYPREXA [Concomitant]

REACTIONS (6)
  - AGGRESSION [None]
  - CONVULSION [None]
  - DRUG TOXICITY [None]
  - DYSSTASIA [None]
  - MANIA [None]
  - SCREAMING [None]
